FAERS Safety Report 6712345-0 (Version None)
Quarter: 2010Q2

REPORT INFORMATION
  Report Type: 
  Country: None (occurrence: None)
  Receive Date: 20100505
  Receipt Date: 20100423
  Transmission Date: 20101027
  Serious: Yes (Other)
  Sender: FDA-Public Use
  Company Number: ES-ELI_LILLY_AND_COMPANY-ES201004006637

PATIENT
  Sex: Female
  Weight: 79 kg

DRUGS (6)
  1. FORTEO [Suspect]
     Indication: OSTEOPOROSIS
     Dosage: 20 UG, DAILY (1/D)
     Route: 058
     Dates: start: 20090601
  2. LYRICA [Concomitant]
     Dosage: 1 D/F, DAILY (1/D)
     Route: 048
  3. ACETAMINOPHEN [Concomitant]
     Dosage: UNK, UNKNOWN
     Route: 048
  4. TRAMADOL [Concomitant]
     Dosage: UNK, UNKNOWN
     Route: 048
  5. AMOXICILLIN [Concomitant]
     Indication: TOOTH DISORDER
     Dosage: 1 D/F, 2/D
     Route: 048
  6. TRANXILIUM [Concomitant]
     Dosage: 1 D/F, DAILY (1/D)
     Route: 048

REACTIONS (6)
  - HEPATIC PAIN [None]
  - INJECTION SITE HAEMATOMA [None]
  - INJECTION SITE HAEMORRHAGE [None]
  - INTENTIONAL DRUG MISUSE [None]
  - JAUNDICE [None]
  - MUSCLE SWELLING [None]
